FAERS Safety Report 8421903-7 (Version None)
Quarter: 2012Q2

REPORT INFORMATION
  Report Type: 
  Country: None (occurrence: None)
  Receive Date: 20120608
  Receipt Date: 20120529
  Transmission Date: 20120825
  Serious: Yes (Hospitalization)
  Sender: FDA-Public Use
  Company Number: US-ELI_LILLY_AND_COMPANY-US201204002415

PATIENT
  Sex: Female

DRUGS (9)
  1. AMIODARONE HCL [Concomitant]
  2. LISINOPRIL [Concomitant]
  3. SYNTHROID [Concomitant]
  4. COUMADIN [Concomitant]
  5. FORTEO [Suspect]
     Indication: OSTEOPOROSIS
     Dosage: 20 UG, QD
     Dates: start: 20110801
  6. METOPROLOL TARTRATE [Concomitant]
  7. FUROSEMIDE [Concomitant]
  8. FORTEO [Suspect]
     Dosage: 20 UG, QD
  9. CRESTOR [Concomitant]

REACTIONS (6)
  - PAIN [None]
  - DEVICE MISUSE [None]
  - DIZZINESS [None]
  - ARTHRALGIA [None]
  - SURGICAL FAILURE [None]
  - EMOTIONAL DISORDER [None]
